FAERS Safety Report 18863973 (Version 6)
Quarter: 2021Q1

REPORT INFORMATION
  Report Type: Report from Study
  Country: US (occurrence: US)
  Receive Date: 20210209
  Receipt Date: 20210330
  Transmission Date: 20210420
  Serious: Yes (Other)
  Sender: FDA-Public Use
  Company Number: NVSC2021US023255

PATIENT
  Sex: Female

DRUGS (1)
  1. OMNITROPE [Suspect]
     Active Substance: SOMATROPIN
     Indication: PRODUCT USED FOR UNKNOWN INDICATION
     Dosage: UNK
     Route: 065

REACTIONS (8)
  - Mental impairment [Unknown]
  - Pain [Unknown]
  - Alopecia [Unknown]
  - Fall [Unknown]
  - Product dose omission issue [Unknown]
  - Onychoclasis [Unknown]
  - Disturbance in attention [Unknown]
  - Asthenia [Unknown]
